FAERS Safety Report 6711720-8 (Version None)
Quarter: 2010Q2

REPORT INFORMATION
  Report Type: 
  Country: None (occurrence: None)
  Receive Date: 20100505
  Receipt Date: 20100429
  Transmission Date: 20101027
  Serious: Yes (Death)
  Sender: FDA-Public Use
  Company Number: ES-ROCHE-698834

PATIENT
  Sex: Male
  Weight: 66.4 kg

DRUGS (3)
  1. CAPECITABINE [Suspect]
     Dosage: FREQUENCY: D2-D8 EVERY 02 WEEKS, LAST DOSE: 14 APRIL 2010, PERMANENTLY DISCONTINUED.
     Route: 048
     Dates: start: 20100408
  2. BEVACIZUMAB [Suspect]
     Dosage: FORM: INFUSION, LAST DOSE: 07 APRIL 2010
     Route: 042
     Dates: start: 20100407
  3. IRINOTECAN HYDROCHLORIDE [Suspect]
     Dosage: FORM: INFUSION, LAST DOSE: 07 APRIL 2010
     Route: 042
     Dates: start: 20100407

REACTIONS (2)
  - DIARRHOEA [None]
  - MULTI-ORGAN FAILURE [None]
